FAERS Safety Report 6019668-1 (Version None)
Quarter: 2008Q4

REPORT INFORMATION
  Report Type: 
  Country: None (occurrence: None)
  Receive Date: 20081224
  Receipt Date: 20081218
  Transmission Date: 20090506
  Serious: Yes (Other)
  Sender: FDA-Public Use
  Company Number: US-TEVA-179561USA

PATIENT
  Sex: Female

DRUGS (1)
  1. MERCAPTOPURINE [Suspect]

REACTIONS (1)
  - PANCREATITIS [None]
